FAERS Safety Report 17786851 (Version 1)
Quarter: 2020Q2

REPORT INFORMATION
  Report Type: Report from Study
  Country: CO (occurrence: CO)
  Receive Date: 20200514
  Receipt Date: 20200514
  Transmission Date: 20200714
  Serious: Yes (Death, Hospitalization)
  Sender: FDA-Public Use
  Company Number: CO-INCYTE CORPORATION-2019IN013307

PATIENT

DRUGS (1)
  1. JAKAVI [Suspect]
     Active Substance: RUXOLITINIB
     Indication: PRODUCT USED FOR UNKNOWN INDICATION
     Route: 065

REACTIONS (5)
  - Pancreatic disorder [Unknown]
  - Spleen disorder [Unknown]
  - Death [Fatal]
  - Hepatic mass [Unknown]
  - Pneumonia [Unknown]

NARRATIVE: CASE EVENT DATE: 20190716
